FAERS Safety Report 6219677-3 (Version None)
Quarter: 2009Q2

REPORT INFORMATION
  Report Type: 
  Country: None (occurrence: None)
  Receive Date: 20090609
  Receipt Date: 20090528
  Transmission Date: 20091009
  Serious: Yes (Hospitalization, Other)
  Sender: FDA-Public Use
  Company Number: US-PFIZER INC-2007052685

PATIENT
  Sex: Female
  Weight: 86.182 kg

DRUGS (10)
  1. CHANTIX [Suspect]
     Indication: SMOKING CESSATION THERAPY
     Dosage: 1 MG, 2X/DAY
     Route: 048
     Dates: start: 20070301
  2. CHANTIX [Suspect]
     Dosage: 1 MG, 2X/DAY
     Dates: start: 20090201
  3. PLAVIX [Concomitant]
     Dosage: UNK
  4. ACETYLSALICYLIC ACID SRT [Concomitant]
     Dosage: 81 MG, UNK
  5. LOPRESSOR [Concomitant]
     Dosage: UNK
  6. ISOSORBIDE DINITRATE [Concomitant]
     Dosage: UNK
  7. LIPITOR [Concomitant]
     Dosage: UNK
  8. ENALAPRIL MALEATE [Concomitant]
     Dosage: UNK
  9. FENOFIBRIC ACID [Concomitant]
     Dosage: UNK
  10. CYMBALTA [Concomitant]
     Dosage: UNK

REACTIONS (15)
  - BLOOD TRIGLYCERIDES INCREASED [None]
  - CHEST PAIN [None]
  - CORONARY ARTERY DISEASE [None]
  - DEPRESSED MOOD [None]
  - DEPRESSION [None]
  - FATIGUE [None]
  - FEELING ABNORMAL [None]
  - HYPERTENSION [None]
  - HYPOTHYROIDISM [None]
  - ILL-DEFINED DISORDER [None]
  - MUSCLE SPASMS [None]
  - MYALGIA [None]
  - NAUSEA [None]
  - PSYCHOTIC DISORDER [None]
  - WEIGHT INCREASED [None]
